FAERS Safety Report 18595686 (Version 8)
Quarter: 2022Q4

REPORT INFORMATION
  Report Type: Spontaneous
  Country: US (occurrence: US)
  Receive Date: 20201209
  Receipt Date: 20221121
  Transmission Date: 20230113
  Serious: Yes (Other)
  Sender: FDA-Public Use
  Company Number: US-PFIZER INC-2020478257

PATIENT
  Age: 54 Year
  Sex: Male
  Weight: 97.506 kg

DRUGS (15)
  1. BENEFIX [Suspect]
     Active Substance: COAGULATION FACTOR IX RECOMBINANT HUMAN\ISOPROPYL ALCOHOL
     Indication: Factor IX deficiency
     Dosage: 3000 IU (INFUSE ~3000UNITS (2700 TO 3300) INTRAVENOUSLY EVERY SAT AND TUES; THEN 5000 UNITS (4500 T)
     Route: 042
     Dates: start: 201803
  2. BENEFIX [Suspect]
     Active Substance: COAGULATION FACTOR IX RECOMBINANT HUMAN\ISOPROPYL ALCOHOL
     Dosage: 3000 IU (W/ ~6000UNITS)
  3. BENEFIX [Suspect]
     Active Substance: COAGULATION FACTOR IX RECOMBINANT HUMAN\ISOPROPYL ALCOHOL
     Dosage: 2000 IU (INFUSE ~ 5000 UNITS (+/-10% )
     Route: 042
  4. BENEFIX [Suspect]
     Active Substance: COAGULATION FACTOR IX RECOMBINANT HUMAN\ISOPROPYL ALCOHOL
     Dosage: 3000 IU (INFUSE ~ 5000 UNITS (+/-10% )
     Route: 042
  5. BENEFIX [Suspect]
     Active Substance: COAGULATION FACTOR IX RECOMBINANT HUMAN\ISOPROPYL ALCOHOL
     Dosage: 3000 IU, 2X/WEEK (INFUSE ~ 5000 UNITS (+/-10% )
     Route: 042
  6. PREZISTA [Concomitant]
     Active Substance: DARUNAVIR ETHANOLATE
     Dosage: 800 MG
  7. ALBUTEROL SULFATE [Concomitant]
     Active Substance: ALBUTEROL SULFATE
     Dosage: UNK
  8. DESCOVY [Concomitant]
     Active Substance: EMTRICITABINE\TENOFOVIR ALAFENAMIDE FUMARATE
  9. HYDROCHLOROTHIAZIDE [Concomitant]
     Active Substance: HYDROCHLOROTHIAZIDE
     Dosage: 25 MG
  10. DOCUSATE SODIUM [Concomitant]
     Active Substance: DOCUSATE SODIUM
     Dosage: UNK
  11. SYMTUZA [Concomitant]
     Active Substance: COBICISTAT\DARUNAVIR\EMTRICITABINE\TENOFOVIR ALAFENAMIDE
     Dosage: 800 MG
  12. SYMTUZA [Concomitant]
     Active Substance: COBICISTAT\DARUNAVIR\EMTRICITABINE\TENOFOVIR ALAFENAMIDE
     Dosage: 150 MG
  13. SYMTUZA [Concomitant]
     Active Substance: COBICISTAT\DARUNAVIR\EMTRICITABINE\TENOFOVIR ALAFENAMIDE
     Dosage: 200 MG
  14. SYMTUZA [Concomitant]
     Active Substance: COBICISTAT\DARUNAVIR\EMTRICITABINE\TENOFOVIR ALAFENAMIDE
     Dosage: 10 MG
  15. PIFELTRO [Concomitant]
     Active Substance: DORAVIRINE
     Dosage: UNK

REACTIONS (6)
  - Haemorrhage [Unknown]
  - Haemarthrosis [Recovered/Resolved]
  - Contusion [Unknown]
  - Intra-abdominal haemorrhage [Unknown]
  - Muscle haemorrhage [Unknown]
  - Weight decreased [Unknown]
